FAERS Safety Report 9870430 (Version 1)
Quarter: 2014Q1

REPORT INFORMATION
  Report Type: Spontaneous
  Country: US (occurrence: None)
  Receive Date: 20140203
  Receipt Date: 20140203
  Transmission Date: 20141002
  Serious: Yes (Hospitalization, Other)
  Sender: FDA-Public Use
  Company Number: US-ALKEM-000475

PATIENT
  Age: 47 Year
  Sex: Female
  Weight: 110 kg

DRUGS (1)
  1. AMLODIPINE (AMLODIPINE) [Suspect]
     Dosage: 350.0000000 - MG - ORAL
     Route: 048

REACTIONS (15)
  - Overdose [None]
  - Shock [None]
  - Muscle contractions involuntary [None]
  - Metabolic acidosis [None]
  - Feeling hot [None]
  - Muscle contractions involuntary [None]
  - Aspartate aminotransferase increased [None]
  - Hyperdynamic left ventricle [None]
  - Hyperlipidaemia [None]
  - Pleural effusion [None]
  - White blood cell count increased [None]
  - Poisoning [None]
  - Blood alcohol increased [None]
  - Electrocardiogram QRS complex prolonged [None]
  - Nodal arrhythmia [None]
